FAERS Safety Report 17778015 (Version 1)
Quarter: 2020Q2

REPORT INFORMATION
  Report Type: Report from Study
  Country: US (occurrence: US)
  Receive Date: 20200513
  Receipt Date: 20200513
  Transmission Date: 20200714
  Serious: Yes (Other)
  Sender: FDA-Public Use
  Company Number: US-EMD SERONO-9161389

PATIENT
  Sex: Female

DRUGS (2)
  1. MAVENCLAD [Suspect]
     Active Substance: CLADRIBINE
     Dosage: FIRST YEAR SECOND MONTH THERAPY: THE PATIENT TOOK TOTAL OF 140 MG IN FIRST YEAR.
     Route: 048
     Dates: start: 20200427, end: 20200501
  2. MAVENCLAD [Suspect]
     Active Substance: CLADRIBINE
     Indication: MULTIPLE SCLEROSIS
     Dosage: FIRST YEAR FIRST MONTH THERAPY.
     Route: 048
     Dates: start: 20200317, end: 20200321

REACTIONS (3)
  - Suspected COVID-19 [Unknown]
  - Dyspnoea [Unknown]
  - Pyrexia [Unknown]
